FAERS Safety Report 14998691 (Version 1)
Quarter: 2018Q2

REPORT INFORMATION
  Report Type: Spontaneous
  Country: US (occurrence: US)
  Receive Date: 20180612
  Receipt Date: 20180612
  Transmission Date: 20180711
  Serious: No
  Sender: FDA-Public Use
  Company Number: PHEH2018US021909

PATIENT
  Age: 85 Year
  Sex: Male

DRUGS (1)
  1. AMANTADINE. [Suspect]
     Active Substance: AMANTADINE HYDROCHLORIDE
     Indication: PARKINSON^S DISEASE
     Dosage: 1 DF, QID
     Route: 065

REACTIONS (5)
  - Gait disturbance [Unknown]
  - Somnolence [Unknown]
  - Joint lock [Unknown]
  - Fatigue [Unknown]
  - Tremor [Unknown]

NARRATIVE: CASE EVENT DATE: 20180427
